FAERS Safety Report 6856772-X (Version None)
Quarter: 2010Q3

REPORT INFORMATION
  Report Type: 
  Country: None (occurrence: None)
  Receive Date: 20100719
  Receipt Date: 20100707
  Transmission Date: 20110219
  Serious: Yes (Hospitalization)
  Sender: FDA-Public Use
  Company Number: JP-AMGEN-QUU418711

PATIENT
  Sex: Female

DRUGS (25)
  1. ENBREL [Suspect]
     Indication: RHEUMATOID ARTHRITIS
     Route: 058
     Dates: end: 20100526
  2. ENBREL [Suspect]
     Dosage: PREVIOUSLY ON LYOPHILIZED 25 MG TWICE WEEKLY
     Route: 058
     Dates: start: 20050425
  3. METHOTREXATE [Suspect]
     Indication: PRODUCT USED FOR UNKNOWN INDICATION
     Dosage: UNSPECIFIED
     Route: 048
  4. CLINORIL [Concomitant]
     Indication: RHEUMATOID ARTHRITIS
     Route: 048
     Dates: start: 20041028, end: 20060803
  5. ROCALTROL [Concomitant]
     Indication: OSTEOPOROSIS
     Route: 048
     Dates: start: 20040715, end: 20071003
  6. FERROMIA [Concomitant]
     Indication: IRON DEFICIENCY ANAEMIA
     Route: 048
     Dates: start: 20041028, end: 20060118
  7. PREDONINE [Concomitant]
     Indication: RHEUMATOID ARTHRITIS
     Route: 048
     Dates: start: 20050223, end: 20061118
  8. FOLIAMIN [Concomitant]
     Indication: PROPHYLAXIS
     Route: 048
     Dates: start: 20040930, end: 20071128
  9. FOLIAMIN [Concomitant]
     Route: 048
     Dates: start: 20071129
  10. METOLATE [Concomitant]
     Indication: RHEUMATOID ARTHRITIS
     Route: 048
     Dates: start: 20040722, end: 20080417
  11. METOLATE [Concomitant]
     Route: 048
     Dates: start: 20080418
  12. MUCOSTA [Concomitant]
     Indication: GASTRITIS
     Route: 048
     Dates: start: 20040715, end: 20081002
  13. LOXOPROFEN SODIUM [Concomitant]
     Indication: RHEUMATOID ARTHRITIS
     Route: 048
     Dates: start: 20060803, end: 20070516
  14. PREDNISOLONE [Concomitant]
     Indication: RHEUMATOID ARTHRITIS
     Route: 048
     Dates: start: 20061109, end: 20071003
  15. PREDNISOLONE [Concomitant]
     Route: 048
     Dates: start: 20071004, end: 20071017
  16. PREDNISOLONE [Concomitant]
     Route: 048
     Dates: start: 20071018, end: 20071128
  17. PREDNISOLONE [Concomitant]
     Route: 048
     Dates: start: 20071129, end: 20071214
  18. DICLOFENAC SODIUM [Concomitant]
     Indication: RHEUMATOID ARTHRITIS
     Route: 048
     Dates: start: 20080502, end: 20081002
  19. MOBIC [Concomitant]
     Indication: RHEUMATOID ARTHRITIS
     Route: 048
     Dates: start: 20081003, end: 20090702
  20. ALTAT [Concomitant]
     Indication: GASTRITIS
     Route: 048
     Dates: start: 20081003
  21. CELECOXIB [Concomitant]
     Indication: RHEUMATOID ARTHRITIS
     Route: 048
     Dates: start: 20090703, end: 20100114
  22. ALFACALCIDOL [Concomitant]
     Indication: OSTEOPOROSIS
     Route: 048
     Dates: start: 20100115
  23. EVISTA [Concomitant]
     Indication: OSTEOPOROSIS
     Route: 048
     Dates: start: 20090703
  24. LOXONIN [Concomitant]
     Indication: RHEUMATOID ARTHRITIS
     Route: 048
     Dates: start: 20070517, end: 20080501
  25. MELOXICAM [Concomitant]
     Indication: RHEUMATOID ARTHRITIS
     Route: 048
     Dates: start: 20100115

REACTIONS (4)
  - HERPES ZOSTER [None]
  - HIP ARTHROPLASTY [None]
  - KAPOSI'S VARICELLIFORM ERUPTION [None]
  - SEBORRHOEIC DERMATITIS [None]
